FAERS Safety Report 9041312 (Version 1)
Quarter: 2013Q1

REPORT INFORMATION
  Report Type: Spontaneous
  Country: US (occurrence: None)
  Receive Date: 20130124
  Receipt Date: 20130124
  Transmission Date: 20140127
  Serious: Yes (Life-Threatening, Disabling, Other)
  Sender: FDA-Public Use
  Company Number: None

PATIENT
  Sex: Female
  Weight: 68.04 kg

DRUGS (1)
  1. ZOCOR [Suspect]
     Indication: BLOOD CHOLESTEROL INCREASED
     Dosage: 10-20-40-80-40   1/DAY   BY MOUTH
     Route: 048
     Dates: start: 2001, end: 2010

REACTIONS (17)
  - Fatigue [None]
  - Nausea [None]
  - Vomiting [None]
  - Abdominal distension [None]
  - Dyspepsia [None]
  - Myalgia [None]
  - Pain [None]
  - Muscle atrophy [None]
  - Arthralgia [None]
  - Renal disorder [None]
  - Amnesia [None]
  - Burning sensation [None]
  - Blood urine present [None]
  - Atrophy [None]
  - Depression [None]
  - Muscle disorder [None]
  - Dysstasia [None]
